FAERS Safety Report 20611262 (Version 3)
Quarter: 2022Q2

REPORT INFORMATION
  Report Type: Spontaneous
  Country: JP (occurrence: JP)
  Receive Date: 20220318
  Receipt Date: 20220428
  Transmission Date: 20220721
  Serious: Yes (Other)
  Sender: FDA-Public Use
  Company Number: JP-MSD-M2022-11273

PATIENT
  Age: 70 Year
  Sex: Female
  Weight: 54 kg

DRUGS (3)
  1. MOLNUPIRAVIR [Suspect]
     Active Substance: MOLNUPIRAVIR
     Indication: COVID-19 treatment
     Dosage: 800 MILLIGRAM, BID
     Route: 048
     Dates: start: 20220225, end: 20220301
  2. CALONAL [Suspect]
     Active Substance: ACETAMINOPHEN
     Indication: COVID-19 treatment
     Dosage: 500 MILLIGRAM, PRN
     Route: 048
     Dates: start: 20220225
  3. DEXTROMETHORPHAN HYDROBROMIDE [Suspect]
     Active Substance: DEXTROMETHORPHAN HYDROBROMIDE
     Indication: COVID-19 treatment
     Dosage: 30 MILLIGRAM, TID
     Route: 048
     Dates: start: 20220225, end: 20220301

REACTIONS (1)
  - Depressed level of consciousness [Recovered/Resolved]

NARRATIVE: CASE EVENT DATE: 20220228
